FAERS Safety Report 21461060 (Version 1)
Quarter: 2022Q4

REPORT INFORMATION
  Report Type: Report from Study
  Country: BR (occurrence: BR)
  Receive Date: 20221015
  Receipt Date: 20221015
  Transmission Date: 20230112
  Serious: Yes (Other)
  Sender: FDA-Public Use
  Company Number: BR-JNJFOC-20221017898

PATIENT
  Age: 4 Decade
  Sex: Female

DRUGS (3)
  1. SIMPONI [Suspect]
     Active Substance: GOLIMUMAB
     Indication: Psoriatic arthropathy
     Route: 058
     Dates: start: 20190102
  2. SIMPONI [Suspect]
     Active Substance: GOLIMUMAB
  3. PENICILLIN G BENZATHINE [Suspect]
     Active Substance: PENICILLIN G BENZATHINE
     Indication: Product used for unknown indication
     Route: 065

REACTIONS (3)
  - Mitral valve disease [Unknown]
  - Injection site haemorrhage [Unknown]
  - Injection site discolouration [Unknown]
